FAERS Safety Report 16015150 (Version 1)
Quarter: 2019Q1

REPORT INFORMATION
  Report Type: Other
  Country: GB (occurrence: GB)
  Receive Date: 20190228
  Receipt Date: 20190228
  Transmission Date: 20190418
  Serious: Yes (Other)
  Sender: FDA-Public Use
  Company Number: GB-LUPIN PHARMACEUTICALS INC.-2019-01070

PATIENT
  Sex: Male

DRUGS (2)
  1. SERTRALINE [Suspect]
     Active Substance: SERTRALINE HYDROCHLORIDE
     Dosage: UNK, DOSE REDUCED
     Route: 065
  2. SERTRALINE [Suspect]
     Active Substance: SERTRALINE HYDROCHLORIDE
     Indication: ANXIETY
     Dosage: 100 MILLIGRAM, STARTED 4-5 YEARS AGO
     Route: 065

REACTIONS (7)
  - Malaise [Unknown]
  - Nausea [Unknown]
  - Anxiety [Unknown]
  - Hangover [Unknown]
  - Alcohol interaction [Unknown]
  - Feeling abnormal [Unknown]
  - Pain [Unknown]
